FAERS Safety Report 9769000 (Version 1)
Quarter: 2013Q4

REPORT INFORMATION
  Report Type: Report from Study
  Country: US (occurrence: US)
  Receive Date: 20131218
  Receipt Date: 20131218
  Transmission Date: 20140711
  Serious: Yes (Death)
  Sender: FDA-Public Use
  Company Number: US-ROCHE-1321822

PATIENT
  Age: 76 Year
  Sex: Male
  Weight: 111.23 kg

DRUGS (1)
  1. LUCENTIS [Suspect]
     Indication: DIABETIC RETINAL OEDEMA
     Route: 065
     Dates: start: 2011

REACTIONS (3)
  - Death [Fatal]
  - Hypophagia [Recovered/Resolved]
  - Eye pain [Recovered/Resolved]
